FAERS Safety Report 11379277 (Version 1)
Quarter: 2015Q3

REPORT INFORMATION
  Report Type: Spontaneous
  Country: US (occurrence: US)
  Receive Date: 20150811
  Receipt Date: 20150811
  Transmission Date: 20151125
  Serious: Yes (Other)
  Sender: FDA-Public Use
  Company Number: US-ELI_LILLY_AND_COMPANY-US200906003847

PATIENT
  Age: 76 Year
  Sex: Male

DRUGS (4)
  1. CIALIS [Suspect]
     Active Substance: TADALAFIL
     Dosage: UNK, UNKNOWN
     Route: 065
  2. MYSOLINE [Concomitant]
     Active Substance: PRIMIDONE
     Dosage: UNK, UNKNOWN
     Route: 065
  3. LOVASTATIN. [Concomitant]
     Active Substance: LOVASTATIN
     Dosage: UNK, UNKNOWN
     Route: 065
  4. CARDURA [Interacting]
     Active Substance: DOXAZOSIN MESYLATE
     Dosage: 2 MG, UNKNOWN
     Route: 065

REACTIONS (3)
  - Drug interaction [Unknown]
  - Loss of consciousness [Unknown]
  - Blood pressure systolic decreased [Unknown]
